FAERS Safety Report 5470656-3 (Version None)
Quarter: 2007Q3

REPORT INFORMATION
  Report Type: 
  Country: None (occurrence: None)
  Receive Date: 20070925
  Receipt Date: 20070913
  Transmission Date: 20080115
  Serious: Yes (Hospitalization)
  Sender: FDA-Public Use
  Company Number: GXKR2007NL07963

PATIENT
  Age: 15 Month
  Sex: Female

DRUGS (5)
  1. PARACETAMOL (NGX(PARACETAMOL) UNKNOWN [Suspect]
     Indication: PYREXIA
  2. VALPROIC ACID [Suspect]
     Indication: MYOCLONIC EPILEPSY
     Dosage: 41 MG/KG/D
  3. TOPIRAMATE [Suspect]
     Indication: MYOCLONIC EPILEPSY
     Dosage: 5.7 MG/KG/D
  4. ETHOSUXIMIDE [Concomitant]
  5. CLONAZEPAM [Concomitant]

REACTIONS (4)
  - DRUG INTERACTION [None]
  - HEPATOTOXICITY [None]
  - LIVER INJURY [None]
  - TRANSAMINASES INCREASED [None]
